FAERS Safety Report 5317225-3 (Version None)
Quarter: 2007Q2

REPORT INFORMATION
  Report Type: 
  Country: None (occurrence: None)
  Receive Date: 20070504
  Receipt Date: 20070427
  Transmission Date: 20071010
  Serious: Yes (Other)
  Sender: FDA-Public Use
  Company Number: AU-GENENTECH-239188

PATIENT
  Sex: Male

DRUGS (1)
  1. RAPTIVA [Suspect]
     Indication: PSORIASIS
     Dosage: 1 MG/KG, 1/WEEK
     Route: 058
     Dates: start: 20061010

REACTIONS (6)
  - DEPRESSION [None]
  - FATIGUE [None]
  - MYALGIA [None]
  - OEDEMA [None]
  - POLYARTHRITIS [None]
  - SACROILIITIS [None]
